FAERS Safety Report 11397785 (Version 2)
Quarter: 2015Q3

REPORT INFORMATION
  Report Type: Spontaneous
  Country: US (occurrence: US)
  Receive Date: 20150819
  Receipt Date: 20150824
  Transmission Date: 20151125
  Serious: Yes (Hospitalization, Disabling, Other)
  Sender: FDA-Public Use
  Company Number: US-009507513-1204USA04182

PATIENT
  Sex: Female

DRUGS (4)
  1. FOSAMAX PLUS D [Suspect]
     Active Substance: ALENDRONATE SODIUM\CHOLECALCIFEROL
     Indication: BONE DENSITY DECREASED
     Dosage: 70 MG-2800
     Route: 048
     Dates: end: 20081226
  2. ALENDRONATE SODIUM. [Suspect]
     Active Substance: ALENDRONATE SODIUM
     Indication: OSTEOPOROSIS
  3. ALENDRONATE SODIUM. [Suspect]
     Active Substance: ALENDRONATE SODIUM
     Indication: BONE DENSITY DECREASED
     Dosage: 70 MG, QW
     Route: 048
     Dates: start: 20090427, end: 20101014
  4. FOSAMAX [Suspect]
     Active Substance: ALENDRONATE SODIUM
     Indication: BONE DENSITY DECREASED
     Dosage: 70 MG, UNK
     Route: 048
     Dates: start: 20030210, end: 20040914

REACTIONS (22)
  - Hyperthyroidism [Not Recovered/Not Resolved]
  - Hypothyroidism [Unknown]
  - Femur fracture [Unknown]
  - Bone pain [Unknown]
  - Fall [Unknown]
  - Blood calcium increased [Unknown]
  - Laceration [Unknown]
  - Chest injury [Unknown]
  - Fall [Unknown]
  - Ligament sprain [Unknown]
  - Bone disorder [Unknown]
  - Post concussion syndrome [Unknown]
  - Musculoskeletal chest pain [Unknown]
  - Hyperlipidaemia [Unknown]
  - Femur fracture [Recovered/Resolved]
  - Arthralgia [Not Recovered/Not Resolved]
  - Hypertension [Unknown]
  - Medical device complication [Unknown]
  - Dyspnoea [Unknown]
  - Tachycardia [Unknown]
  - Hypercalciuria [Unknown]
  - Blood cholesterol increased [Unknown]

NARRATIVE: CASE EVENT DATE: 20060129
